FAERS Safety Report 24617259 (Version 1)
Quarter: 2024Q4

REPORT INFORMATION
  Report Type: Report from Study
  Country: DE (occurrence: DE)
  Receive Date: 20241114
  Receipt Date: 20241114
  Transmission Date: 20250115
  Serious: No
  Sender: ROCHE
  Company Number: DE-ML39632-2352266-0

PATIENT
  Age: 59 Year
  Sex: Female

DRUGS (8)
  1. OCREVUS [Suspect]
     Active Substance: OCRELIZUMAB
     Indication: Relapsing multiple sclerosis
     Route: 042
     Dates: start: 20220404
  2. OCREVUS [Suspect]
     Active Substance: OCRELIZUMAB
     Route: 042
     Dates: start: 20210920, end: 20211004
  3. DALFAMPRIDINE [Concomitant]
     Active Substance: DALFAMPRIDINE
     Indication: Gait disturbance
     Route: 048
  4. PREGABALIN [Concomitant]
     Active Substance: PREGABALIN
     Route: 048
  5. PREGABALIN [Concomitant]
     Active Substance: PREGABALIN
     Route: 048
  6. CHOLECALCIFEROL [Concomitant]
     Active Substance: CHOLECALCIFEROL
     Indication: Prophylaxis
  7. TAMSULOSIN [Concomitant]
     Active Substance: TAMSULOSIN
     Indication: Bladder dysfunction
     Dates: start: 2023
  8. DESFESOTERODINE [Concomitant]
     Active Substance: DESFESOTERODINE
     Indication: Bladder dysfunction
     Route: 048
     Dates: start: 2024

REACTIONS (1)
  - COVID-19 [Recovered/Resolved]

NARRATIVE: CASE EVENT DATE: 20240701
